FAERS Safety Report 24568393 (Version 1)
Quarter: 2024Q4

REPORT INFORMATION
  Report Type: Spontaneous
  Country: MX (occurrence: MX)
  Receive Date: 20241031
  Receipt Date: 20241031
  Transmission Date: 20250115
  Serious: Yes (Other)
  Sender: ROCHE
  Company Number: MX-ROCHE-10000097518

PATIENT
  Age: 65 Year
  Sex: Female
  Weight: 70 kg

DRUGS (2)
  1. FARICIMAB [Suspect]
     Active Substance: FARICIMAB
     Indication: Diabetic retinal oedema
     Dosage: 6 MG IN 0.05 ML
     Route: 050
     Dates: start: 20240110, end: 20240710
  2. AFLIBERCEPT [Concomitant]
     Active Substance: AFLIBERCEPT

REACTIONS (4)
  - Pain [Recovering/Resolving]
  - Corneal oedema [Recovering/Resolving]
  - Conjunctival hyperaemia [Recovering/Resolving]
  - Anterior chamber inflammation [Recovering/Resolving]

NARRATIVE: CASE EVENT DATE: 20240714
